FAERS Safety Report 5444187-0 (Version None)
Quarter: 2007Q3

REPORT INFORMATION
  Report Type: 
  Country: None (occurrence: None)
  Receive Date: 20070904
  Receipt Date: 20070904
  Transmission Date: 20080115
  Serious: Yes (Other)
  Sender: FDA-Public Use
  Company Number: None

PATIENT

DRUGS (1)
  1. METHIMAZOLE 10 G [Suspect]

REACTIONS (3)
  - ADVERSE DRUG REACTION [None]
  - ARTHRITIS [None]
  - THYROID DISORDER [None]
